FAERS Safety Report 9269727 (Version 2)
Quarter: 2013Q3

REPORT INFORMATION
  Report Type: Report from Study
  Country: DE (occurrence: DE)
  Receive Date: 20130503
  Receipt Date: 20130702
  Transmission Date: 20140515
  Serious: Yes (Life-Threatening, Other)
  Sender: FDA-Public Use
  Company Number: US-BRISTOL-MYERS SQUIBB COMPANY-18823575

PATIENT
  Age: 74 Year
  Sex: Male
  Weight: 69 kg

DRUGS (5)
  1. ETOPOSIDE [Suspect]
     Indication: ACUTE MYELOID LEUKAEMIA
     Dosage: 9-11MAR13
     Dates: start: 20130309
  2. CYTARABINE [Suspect]
     Indication: ACUTE MYELOID LEUKAEMIA
     Dosage: 9-15MAR13
     Dates: start: 20130309
  3. IDARUBICIN [Suspect]
     Indication: ACUTE MYELOID LEUKAEMIA
     Dosage: 9-11MAR13
     Dates: start: 20130309
  4. GEMTUZUMAB OZOGAMICIN [Suspect]
     Indication: ACUTE MYELOID LEUKAEMIA
     Dates: start: 20130309
  5. TRETINOIN [Suspect]
     Indication: ACUTE MYELOID LEUKAEMIA
     Dosage: 14-16MAR13.17MAR13-ONG
     Dates: start: 20130314

REACTIONS (2)
  - Ileus [Recovered/Resolved]
  - Mucosal inflammation [Unknown]
